FAERS Safety Report 4400891-4 (Version None)
Quarter: 2004Q3

REPORT INFORMATION
  Report Type: 
  Country: None (occurrence: None)
  Receive Date: 20040907
  Receipt Date: 20030723
  Transmission Date: 20050211
  Serious: No
  Sender: FDA-Public Use
  Company Number: US-BRISTOL-MYERS SQUIBB COMPANY-12333852

PATIENT
  Age: 62 Year
  Sex: Female
  Weight: 60 kg

DRUGS (9)
  1. COUMADIN [Suspect]
     Indication: HEART RATE ABNORMAL
     Dosage: DOSE = 4MG FIVE DAYS A WEEK AND 6MG TWO DAYS A WEEK.
     Route: 048
  2. GLUCOPHAGE [Concomitant]
  3. LIPITOR [Concomitant]
  4. MAGNESIUM [Concomitant]
  5. CALCIUM [Concomitant]
  6. VITAMINS MULTIPLE [Concomitant]
  7. MONOPRIL [Concomitant]
  8. ASPIRIN [Concomitant]
  9. ZOLOFT [Concomitant]

REACTIONS (2)
  - BLOOD GLUCOSE INCREASED [None]
  - DRUG LEVEL FLUCTUATING [None]
